FAERS Safety Report 18874828 (Version 2)
Quarter: 2021Q4

REPORT INFORMATION
  Report Type: Spontaneous
  Country: US (occurrence: US)
  Receive Date: 20210210
  Receipt Date: 20211001
  Transmission Date: 20220303
  Serious: Yes (Other)
  Sender: FDA-Public Use
  Company Number: 2021A027519

PATIENT
  Age: 57 Year
  Sex: Male
  Weight: 127 kg

DRUGS (25)
  1. NEXIUM [Suspect]
     Active Substance: ESOMEPRAZOLE MAGNESIUM
     Indication: Gastrooesophageal reflux disease
     Route: 048
     Dates: start: 2009
  2. NEXIUM [Suspect]
     Active Substance: ESOMEPRAZOLE MAGNESIUM
     Indication: Gastrooesophageal reflux disease
     Route: 048
     Dates: start: 2005, end: 2021
  3. PRILOSEC [Suspect]
     Active Substance: OMEPRAZOLE MAGNESIUM
     Indication: Gastrooesophageal reflux disease
     Route: 048
     Dates: start: 2009
  4. PRILOSEC [Suspect]
     Active Substance: OMEPRAZOLE MAGNESIUM
     Indication: Gastrooesophageal reflux disease
     Dosage: 20.0MG UNKNOWN
     Route: 048
     Dates: start: 2005, end: 2021
  5. PRILOSEC [Suspect]
     Active Substance: OMEPRAZOLE MAGNESIUM
     Indication: Gastrooesophageal reflux disease
     Dosage: GENERIC20.0MG UNKNOWN
     Route: 065
     Dates: start: 2012
  6. PRILOSEC [Suspect]
     Active Substance: OMEPRAZOLE MAGNESIUM
     Indication: Gastrooesophageal reflux disease
     Dosage: GENERIC20.0MG UNKNOWN
     Route: 065
     Dates: start: 20170105
  7. LISINOPRIL [Concomitant]
     Active Substance: LISINOPRIL
     Indication: Blood pressure abnormal
     Dates: start: 2015, end: 2017
  8. ATORVASTATIN [Concomitant]
     Active Substance: ATORVASTATIN
     Indication: Blood cholesterol abnormal
     Dates: start: 2012, end: 2017
  9. DEPAKOTE [Concomitant]
     Active Substance: DIVALPROEX SODIUM
     Indication: Bipolar disorder
     Dates: start: 2013, end: 2017
  10. ASPIRIN [Concomitant]
     Active Substance: ASPIRIN
     Indication: Pain
     Dates: start: 2016
  11. TUMS [Concomitant]
     Active Substance: CALCIUM CARBONATE
     Dosage: 3/MORNING; 3/NIGHT
     Dates: start: 2019
  12. ZALEPLON [Concomitant]
     Active Substance: ZALEPLON
  13. PROAIR HFA [Concomitant]
     Active Substance: ALBUTEROL SULFATE
  14. HUMALOG [Concomitant]
     Active Substance: INSULIN LISPRO
  15. LEVEMIR [Concomitant]
     Active Substance: INSULIN DETEMIR
  16. JARDIANCE [Concomitant]
     Active Substance: EMPAGLIFLOZIN
  17. METFORMIN [Concomitant]
     Active Substance: METFORMIN HYDROCHLORIDE
  18. GLIMEPIRIDE [Concomitant]
     Active Substance: GLIMEPIRIDE
  19. CEPHALEXIN [Concomitant]
     Active Substance: CEPHALEXIN
  20. BUPROPION HYDROCHLORIDE [Concomitant]
     Active Substance: BUPROPION HYDROCHLORIDE
  21. NOVOLOG [Concomitant]
     Active Substance: INSULIN ASPART
  22. TRAZODONE [Concomitant]
     Active Substance: TRAZODONE HYDROCHLORIDE
  23. DIVALPROEX SODIUM [Concomitant]
     Active Substance: DIVALPROEX SODIUM
  24. INVEGA [Concomitant]
     Active Substance: PALIPERIDONE
  25. ALBUTEROL [Concomitant]
     Active Substance: ALBUTEROL

REACTIONS (1)
  - Chronic kidney disease [Not Recovered/Not Resolved]

NARRATIVE: CASE EVENT DATE: 20180101
